FAERS Safety Report 8773521 (Version 9)
Quarter: 2014Q1

REPORT INFORMATION
  Report Type: Spontaneous
  Country: US (occurrence: US)
  Receive Date: 20120907
  Receipt Date: 20140221
  Transmission Date: 20141002
  Serious: Yes (Death, Hospitalization, Other)
  Sender: FDA-Public Use
  Company Number: US-GLAXOSMITHKLINE-A0992405A

PATIENT
  Age: 52 Year
  Sex: Female

DRUGS (3)
  1. FLOLAN [Suspect]
     Indication: COR PULMONALE CHRONIC
     Dosage: 38.5NGKM CONTINUOUS
     Route: 042
     Dates: start: 20061129
  2. ADCIRCA [Concomitant]
  3. TRACLEER [Concomitant]

REACTIONS (19)
  - Investigation [Unknown]
  - Death [Fatal]
  - Cardiac failure congestive [Fatal]
  - Device dislocation [Recovered/Resolved]
  - Underdose [Recovered/Resolved]
  - Wrong technique in drug usage process [Recovered/Resolved]
  - Nausea [Recovered/Resolved]
  - Feeling hot [Recovered/Resolved]
  - Headache [Recovered/Resolved]
  - Back pain [Recovered/Resolved]
  - Paranasal sinus hypersecretion [Recovered/Resolved]
  - Epistaxis [Unknown]
  - Catheter site related reaction [Recovered/Resolved]
  - Fluid retention [Unknown]
  - Pain in extremity [Recovered/Resolved]
  - Pain in jaw [Not Recovered/Not Resolved]
  - Flushing [Not Recovered/Not Resolved]
  - Malaise [Unknown]
  - Catheterisation cardiac [Unknown]
